FAERS Safety Report 10005901 (Version 8)
Quarter: 2016Q2

REPORT INFORMATION
  Report Type: Spontaneous
  Country: JP (occurrence: JP)
  Receive Date: 20140313
  Receipt Date: 20160407
  Transmission Date: 20160815
  Serious: Yes (Death, Life-Threatening, Hospitalization, Congenital Anomaly, Other)
  Sender: FDA-Public Use
  Company Number: JP-JNJFOC-20140306178

PATIENT
  Age: 0 Day
  Sex: Female
  Weight: .3 kg

DRUGS (4)
  1. REMICADE [Suspect]
     Active Substance: INFLIXIMAB
     Indication: PUSTULAR PSORIASIS
     Dosage: 64TH INFUSION
     Route: 064
     Dates: start: 20130919, end: 20130919
  2. REMICADE [Suspect]
     Active Substance: INFLIXIMAB
     Indication: PUSTULAR PSORIASIS
     Dosage: 7TH DOSE
     Route: 064
     Dates: start: 20140222, end: 20140222
  3. REMICADE [Suspect]
     Active Substance: INFLIXIMAB
     Indication: PUSTULAR PSORIASIS
     Route: 064
     Dates: start: 20140206, end: 20140206
  4. REMICADE [Suspect]
     Active Substance: INFLIXIMAB
     Indication: PUSTULAR PSORIASIS
     Route: 064
     Dates: start: 20130404

REACTIONS (13)
  - Low birth weight baby [Fatal]
  - Intestinal perforation [Fatal]
  - Foetal exposure during pregnancy [Recovered/Resolved]
  - Dyspepsia [Unknown]
  - Intraventricular haemorrhage [Unknown]
  - Neonatal respiratory distress syndrome [Unknown]
  - Muscle tightness [Unknown]
  - Foetal growth restriction [Unknown]
  - Premature baby [Not Recovered/Not Resolved]
  - Necrotising colitis [Fatal]
  - Hydrocephalus [Unknown]
  - Foetal growth restriction [Not Recovered/Not Resolved]
  - Exposure during breast feeding [Unknown]

NARRATIVE: CASE EVENT DATE: 20140227
